FAERS Safety Report 11687591 (Version 1)
Quarter: 2015Q4

REPORT INFORMATION
  Report Type: Spontaneous
  Country: US (occurrence: US)
  Receive Date: 20151030
  Receipt Date: 20151030
  Transmission Date: 20160304
  Serious: No
  Sender: FDA-Public Use
  Company Number: GXBR2015US002352

PATIENT
  Age: 7 Year
  Sex: Female
  Weight: 34.14 kg

DRUGS (1)
  1. MUPIROCIN. [Suspect]
     Active Substance: MUPIROCIN
     Indication: SKIN PAPILLOMA
     Dosage: BID
     Route: 061
     Dates: start: 20150917, end: 20151008

REACTIONS (2)
  - Therapeutic response unexpected [Not Recovered/Not Resolved]
  - Off label use [Recovered/Resolved]

NARRATIVE: CASE EVENT DATE: 20150917
